FAERS Safety Report 5427125-6 (Version None)
Quarter: 2007Q3

REPORT INFORMATION
  Report Type: 
  Country: None (occurrence: None)
  Receive Date: 20070828
  Receipt Date: 20070814
  Transmission Date: 20080115
  Serious: Yes (Hospitalization)
  Sender: FDA-Public Use
  Company Number: PHHO2007RU13430

PATIENT
  Age: 61 Year
  Sex: Female
  Weight: 85.5 kg

DRUGS (1)
  1. LMF237 VS VILDAGLIPTIN VS METFORMIN [Suspect]
     Indication: TYPE 2 DIABETES MELLITUS
     Dosage: DOUBLE BLIND
     Route: 048
     Dates: start: 20070724, end: 20070813

REACTIONS (4)
  - ABDOMINAL PAIN [None]
  - ABDOMINAL PAIN UPPER [None]
  - DIARRHOEA [None]
  - PANCREATITIS ACUTE [None]
